FAERS Safety Report 18217762 (Version 1)
Quarter: 2020Q3

REPORT INFORMATION
  Report Type: Spontaneous
  Country: US (occurrence: US)
  Receive Date: 20200831
  Receipt Date: 20200831
  Transmission Date: 20201103
  Serious: Yes (Other)
  Sender: FDA-Public Use
  Company Number: None

PATIENT
  Age: 32 Year
  Sex: Female
  Weight: 44.91 kg

DRUGS (2)
  1. GENERIC YAZ [Suspect]
     Active Substance: DROSPIRENONE\ETHINYL ESTRADIOL
     Indication: ORAL CONTRACEPTION
     Route: 048
     Dates: start: 2018
  2. YAZ [Suspect]
     Active Substance: DROSPIRENONE\ETHINYL ESTRADIOL
     Indication: ORAL CONTRACEPTION
     Dosage: ?          OTHER DOSE:3?0.02 MG;?
     Route: 048
     Dates: start: 2018

REACTIONS (2)
  - Insurance issue [None]
  - Menstruation irregular [None]

NARRATIVE: CASE EVENT DATE: 20200615
